FAERS Safety Report 10060826 (Version 1)
Quarter: 2014Q2

REPORT INFORMATION
  Report Type: Spontaneous
  Country: GB (occurrence: GB)
  Receive Date: 20140404
  Receipt Date: 20140404
  Transmission Date: 20141212
  Serious: Yes (Other)
  Sender: FDA-Public Use
  Company Number: GB-GILEAD-2014-0098919

PATIENT
  Age: 70 Year
  Sex: Male
  Weight: 60 kg

DRUGS (6)
  1. VIREAD [Suspect]
     Indication: HIV INFECTION
     Route: 048
     Dates: start: 20120701, end: 20140310
  2. VIREAD [Suspect]
     Dosage: UNK, QOD
     Route: 048
  3. ASPIRIN [Concomitant]
  4. ATORVASTATIN [Concomitant]
  5. DOXYCYCLINE HYDROCHLORIDE [Concomitant]
  6. EVIPLERA [Concomitant]

REACTIONS (7)
  - Nephropathy toxic [Unknown]
  - Hypotension [Unknown]
  - Fanconi syndrome acquired [Recovering/Resolving]
  - Aminoaciduria [Unknown]
  - Acidosis hyperchloraemic [Unknown]
  - Hypokalaemia [Unknown]
  - Hypophosphataemia [Unknown]
